FAERS Safety Report 4873077-7 (Version None)
Quarter: 2006Q1

REPORT INFORMATION
  Report Type: 
  Country: None (occurrence: None)
  Receive Date: 20060104
  Receipt Date: 20060104
  Transmission Date: 20060701
  Serious: Yes (Hospitalization)
  Sender: FDA-Public Use
  Company Number: None

PATIENT
  Age: 66 Year
  Sex: Male
  Weight: 98 kg

DRUGS (1)
  1. FLUTAMIDE [Suspect]
     Indication: PROSTATE CANCER
     Dosage: 250 MG   TID   PO  (DURATION: SEVERAL MONTHS)
     Route: 048

REACTIONS (2)
  - CYANOSIS [None]
  - SULPHAEMOGLOBINAEMIA [None]
